FAERS Safety Report 8943674 (Version 1)
Quarter: 2012Q4

REPORT INFORMATION
  Report Type: 
  Country: JP (occurrence: JP)
  Receive Date: 20121204
  Receipt Date: 20121204
  Transmission Date: 20130627
  Serious: Yes (Other)
  Sender: FDA-Public Use
  Company Number: PHHY2012JP077001

PATIENT
  Age: 62 Year
  Sex: Male

DRUGS (5)
  1. NEORAL [Suspect]
     Indication: HISTIOCYTOSIS HAEMATOPHAGIC
     Dosage: 125 mg, daily
     Route: 048
  2. ADRIACIN [Suspect]
     Indication: HODGKIN^S DISEASE
  3. BLEOMYCIN HYDROCHLORIDE [Suspect]
     Indication: HODGKIN^S DISEASE
  4. VINBLASTINE SULFATE [Suspect]
     Indication: HODGKIN^S DISEASE
  5. DACARBAZINE [Suspect]
     Indication: HODGKIN^S DISEASE

REACTIONS (5)
  - Infection [Unknown]
  - Pseudomembranous colitis [Unknown]
  - Febrile neutropenia [Unknown]
  - Enterocolitis [Recovering/Resolving]
  - Drug level fluctuating [Recovering/Resolving]
